FAERS Safety Report 18840746 (Version 1)
Quarter: 2021Q1

REPORT INFORMATION
  Report Type: Spontaneous
  Country: GB (occurrence: GB)
  Receive Date: 20210203
  Receipt Date: 20210203
  Transmission Date: 20210419
  Serious: Yes (Hospitalization)
  Sender: FDA-Public Use
  Company Number: GB-ELI_LILLY_AND_COMPANY-GB202101009527

PATIENT
  Age: 59 Year
  Sex: Male

DRUGS (1)
  1. CYMBALTA [Suspect]
     Active Substance: DULOXETINE HYDROCHLORIDE
     Indication: MOTOR NEURONE DISEASE
     Dosage: UNK, UNKNOWN
     Route: 065

REACTIONS (4)
  - Off label use [Unknown]
  - Cerebrovascular accident [Unknown]
  - Dysphagia [Not Recovered/Not Resolved]
  - Malaise [Unknown]

NARRATIVE: CASE EVENT DATE: 202012
